FAERS Safety Report 8423402-5 (Version None)
Quarter: 2012Q2

REPORT INFORMATION
  Report Type: 
  Country: None (occurrence: None)
  Receive Date: 20120608
  Receipt Date: 20120530
  Transmission Date: 20120825
  Serious: Yes (Other)
  Sender: FDA-Public Use
  Company Number: FR-JNJFOC-20120600414

PATIENT
  Age: 73 Year

DRUGS (2)
  1. INFLIXIMAB, RECOMBINANT [Suspect]
     Indication: MUSCULOSKELETAL PAIN
     Route: 042
  2. AZATHIOPRINE [Concomitant]
     Route: 065

REACTIONS (1)
  - HERPES ZOSTER [None]
